FAERS Safety Report 5594611-8 (Version None)
Quarter: 2008Q1

REPORT INFORMATION
  Report Type: 
  Country: None (occurrence: None)
  Receive Date: 20080117
  Receipt Date: 20070809
  Transmission Date: 20080703
  Serious: Yes (Death)
  Sender: FDA-Public Use
  Company Number: BE-PURDUE-GBR_2007_0003270

PATIENT
  Age: 93 Year
  Sex: Female

DRUGS (2)
  1. PALLADONE 2 MG [Suspect]
     Indication: DRUG USE FOR UNKNOWN INDICATION
     Dosage: 4 MG, DAILY
     Route: 065
     Dates: start: 20050415
  2. CONTRADOL [Concomitant]
     Indication: DRUG USE FOR UNKNOWN INDICATION
     Dosage: UNK, TID
     Route: 065
     Dates: start: 20050318

REACTIONS (1)
  - DISEASE PROGRESSION [None]
